FAERS Safety Report 5488224-6 (Version None)
Quarter: 2007Q4

REPORT INFORMATION
  Report Type: 
  Country: None (occurrence: None)
  Receive Date: 20071017
  Receipt Date: 20071015
  Transmission Date: 20080405
  Serious: Yes (Other)
  Sender: FDA-Public Use
  Company Number: A0687651A

PATIENT
  Sex: Male

DRUGS (2)
  1. TUMS E-X TABLETS [Suspect]
     Route: 048
  2. ANTI-CHOLESTEROL MEDICATION [Concomitant]

REACTIONS (1)
  - HEPATIC ENZYME INCREASED [None]
